FAERS Safety Report 7909940-X (Version None)
Quarter: 2011Q4

REPORT INFORMATION
  Report Type: 
  Country: None (occurrence: None)
  Receive Date: 20111111
  Receipt Date: 20111103
  Transmission Date: 20120403
  Serious: Yes (Hospitalization)
  Sender: FDA-Public Use
  Company Number: AT-ROCHE-1009118

PATIENT
  Sex: Female

DRUGS (5)
  1. AVASTIN [Suspect]
     Indication: GLIOBLASTOMA
     Route: 042
     Dates: start: 20100303, end: 20100312
  2. IRINOTECAN HYDROCHLORIDE [Suspect]
     Indication: GLIOBLASTOMA
     Route: 042
     Dates: start: 20100303, end: 20100312
  3. FORTECORTIN [Concomitant]
  4. AVASTIN [Suspect]
     Route: 042
  5. DEPAKENE [Concomitant]

REACTIONS (1)
  - TUMOUR COMPRESSION [None]
